FAERS Safety Report 10025207 (Version 1)
Quarter: 2014Q1

REPORT INFORMATION
  Report Type: Spontaneous
  Country: JP (occurrence: None)
  Receive Date: 20140214
  Receipt Date: 20140214
  Transmission Date: 20141002
  Serious: Yes (Other)
  Sender: FDA-Public Use
  Company Number: ADR-2011-10929

PATIENT
  Age: 60 Year
  Sex: Male
  Weight: 49 kg

DRUGS (3)
  1. GABALON [Suspect]
     Indication: MUSCLE SPASTICITY
     Dosage: SEE IMAGE
  2. DANTRIUM [Concomitant]
  3. HARNAL DO.2 [Concomitant]

REACTIONS (3)
  - Implant site haematoma [None]
  - Muscle spasms [None]
  - Residual urine volume increased [None]
